FAERS Safety Report 4310339-6 (Version None)
Quarter: 2004Q1

REPORT INFORMATION
  Report Type: 
  Country: None (occurrence: None)
  Receive Date: 20040303
  Receipt Date: 20031015
  Transmission Date: 20041129
  Serious: Yes (Other)
  Sender: FDA-Public Use
  Company Number: DE-ROCHE-349238

PATIENT
  Age: 51 Year
  Sex: Female
  Weight: 90 kg

DRUGS (13)
  1. LEVODOPA [Suspect]
     Indication: DRUG USE FOR UNKNOWN INDICATION
     Route: 065
  2. NEORECORMON [Suspect]
     Route: 058
     Dates: start: 20020815, end: 20030315
  3. NEORECORMON [Suspect]
     Route: 058
     Dates: start: 20030615, end: 20030715
  4. NEORECORMON [Suspect]
     Route: 042
     Dates: start: 20030315, end: 20030615
  5. NEORECORMON [Suspect]
     Route: 042
     Dates: start: 20030715
  6. ERYPO [Suspect]
     Route: 058
     Dates: start: 20000915, end: 20001015
  7. ERYPO [Suspect]
     Route: 058
     Dates: start: 20001015, end: 20010215
  8. ERYPO [Suspect]
     Route: 058
     Dates: start: 20010215, end: 20010815
  9. ERYPO [Suspect]
     Route: 058
     Dates: start: 20010815, end: 20020815
  10. ALLOPURINOL [Suspect]
     Indication: DRUG USE FOR UNKNOWN INDICATION
     Route: 065
  11. TRIAMTEREN [Suspect]
     Route: 065
  12. FUROSEMIDE [Suspect]
     Indication: DRUG USE FOR UNKNOWN INDICATION
     Route: 065
  13. BEMETIZID [Suspect]
     Route: 065

REACTIONS (2)
  - ANAEMIA [None]
  - DRUG SPECIFIC ANTIBODY ABSENT [None]
